FAERS Safety Report 9701545 (Version 1)
Quarter: 2013Q4

REPORT INFORMATION
  Report Type: Spontaneous
  Country: US (occurrence: None)
  Receive Date: 20131120
  Receipt Date: 20131120
  Transmission Date: 20140711
  Serious: Yes (Disabling)
  Sender: FDA-Public Use
  Company Number: None

PATIENT
  Age: 30 Year
  Sex: Female
  Weight: 117.48 kg

DRUGS (1)
  1. LOXAPINE [Suspect]
     Indication: BIPOLAR DISORDER
     Dosage: 2 PILLS AT BEDTIME TAKEN BY MOUTH
     Route: 048
     Dates: start: 20101001

REACTIONS (3)
  - Fatigue [None]
  - Muscle twitching [None]
  - Drooling [None]
